FAERS Safety Report 16276459 (Version 1)
Quarter: 2019Q2

REPORT INFORMATION
  Report Type: Report from Study
  Country: US (occurrence: US)
  Receive Date: 20190506
  Receipt Date: 20190506
  Transmission Date: 20190711
  Serious: No
  Sender: FDA-Public Use
  Company Number: PHEH2019US018638

PATIENT
  Sex: Female

DRUGS (1)
  1. COSENTYX [Suspect]
     Active Substance: SECUKINUMAB
     Indication: PSORIATIC ARTHROPATHY
     Route: 065
     Dates: start: 20190201

REACTIONS (5)
  - Body temperature fluctuation [Unknown]
  - Sinusitis [Unknown]
  - Fatigue [Unknown]
  - Irritable bowel syndrome [Not Recovered/Not Resolved]
  - Dizziness [Unknown]
